FAERS Safety Report 7702298-0 (Version None)
Quarter: 2011Q3

REPORT INFORMATION
  Report Type: 
  Country: None (occurrence: None)
  Receive Date: 20110822
  Receipt Date: 20110812
  Transmission Date: 20111222
  Serious: Yes (Other)
  Sender: FDA-Public Use
  Company Number: US-ASTRAZENECA-2011SE47851

PATIENT
  Age: 83 Year
  Sex: Female

DRUGS (2)
  1. NEXIUM [Suspect]
     Route: 048
  2. INDICIN [Concomitant]

REACTIONS (3)
  - GASTRIC DISORDER [None]
  - SCLERITIS [None]
  - MULTIPLE SCLEROSIS [None]
